FAERS Safety Report 17432572 (Version 1)
Quarter: 2020Q1

REPORT INFORMATION
  Report Type: Spontaneous
  Country: FR (occurrence: FR)
  Receive Date: 20200218
  Receipt Date: 20200218
  Transmission Date: 20200409
  Serious: Yes (Life-Threatening)
  Sender: FDA-Public Use
  Company Number: FR-TEVA-2020-FR-1187503

PATIENT
  Age: 5 Year
  Sex: Female

DRUGS (6)
  1. ENALAPRIL (MALEATE D^) [Suspect]
     Active Substance: ENALAPRIL MALEATE
     Route: 048
     Dates: start: 20190918
  2. VORICONAZOLE. [Suspect]
     Active Substance: VORICONAZOLE
     Indication: PRODUCT USED FOR UNKNOWN INDICATION
     Dosage: UNSPECIFIED
     Route: 042
     Dates: start: 20190811, end: 20191029
  3. INFLIXIMAB ((MAMMIFERE/HAMSTER/CELLULES CHO)) [Suspect]
     Active Substance: INFLIXIMAB
     Indication: PRODUCT USED FOR UNKNOWN INDICATION
     Dosage: UNSPECIFIED
     Route: 042
     Dates: start: 20190831, end: 20200106
  4. SIROLIMUS. [Suspect]
     Active Substance: SIROLIMUS
     Indication: PRODUCT USED FOR UNKNOWN INDICATION
     Dosage: UNSPECIFIED
     Route: 048
     Dates: start: 20190917, end: 20200113
  5. JAKAVI [Suspect]
     Active Substance: RUXOLITINIB
     Indication: PRODUCT USED FOR UNKNOWN INDICATION
     Dosage: UNSPECIFIED
     Route: 048
     Dates: start: 20190814
  6. LEVETIRACETAM. [Suspect]
     Active Substance: LEVETIRACETAM
     Indication: PRODUCT USED FOR UNKNOWN INDICATION
     Dosage: UNSPECIFIED
     Route: 048
     Dates: start: 20190916

REACTIONS (1)
  - Interstitial lung disease [Not Recovered/Not Resolved]

NARRATIVE: CASE EVENT DATE: 20191004
